FAERS Safety Report 14774609 (Version 1)
Quarter: 2018Q2

REPORT INFORMATION
  Report Type: Spontaneous
  Country: US (occurrence: US)
  Receive Date: 20180418
  Receipt Date: 20180418
  Transmission Date: 20180711
  Serious: No
  Sender: FDA-Public Use
  Company Number: US-ASTELLAS-2017US015003

PATIENT

DRUGS (2)
  1. LEXISCAN [Suspect]
     Active Substance: REGADENOSON
     Indication: PRODUCT USED FOR UNKNOWN INDICATION
     Dosage: 0.4 MG/5 ML, UNKNOWN FREQ.
     Route: 042
     Dates: start: 201704, end: 201704
  2. LEXISCAN [Suspect]
     Active Substance: REGADENOSON
     Dosage: 0.4 MG/5 ML, UNKNOWN FREQ.
     Route: 042
     Dates: start: 201704, end: 201704

REACTIONS (1)
  - Accidental overdose [Unknown]

NARRATIVE: CASE EVENT DATE: 201704
